FAERS Safety Report 8854144 (Version 3)
Quarter: 2013Q3

REPORT INFORMATION
  Report Type: Spontaneous
  Country: US (occurrence: US)
  Receive Date: 20121022
  Receipt Date: 20130822
  Transmission Date: 20140515
  Serious: Yes (Death, Other)
  Sender: FDA-Public Use
  Company Number: US-009507513-1208USA007659

PATIENT
  Sex: Female

DRUGS (3)
  1. PEGINTRON [Suspect]
     Indication: HEPATITIS C
     Dosage: UNK
     Dates: start: 20120718, end: 20121011
  2. RIBAVIRIN [Suspect]
     Indication: HEPATITIS C
     Dosage: 5 DF, QD
     Dates: start: 20120711
  3. RIBAVIRIN [Suspect]
     Dosage: 3 DF, QD
     Dates: end: 20121011

REACTIONS (40)
  - Death [Fatal]
  - Micturition urgency [Unknown]
  - Swollen tongue [Unknown]
  - Psychomotor hyperactivity [Unknown]
  - Contusion [Unknown]
  - Dysgeusia [Unknown]
  - Glossodynia [Unknown]
  - Thirst [Unknown]
  - Influenza [Unknown]
  - Throat tightness [Unknown]
  - Cystitis [Unknown]
  - Platelet count decreased [Unknown]
  - Swelling face [Unknown]
  - Dysphagia [Unknown]
  - Dehydration [Unknown]
  - Rash [Unknown]
  - Dysphagia [Unknown]
  - Pruritus [Unknown]
  - Rash [Unknown]
  - Decreased appetite [Unknown]
  - Dysgeusia [Unknown]
  - Fatigue [Unknown]
  - Somnolence [Unknown]
  - Pruritus [Unknown]
  - Rash [Unknown]
  - Thrombocytopenia [Unknown]
  - Alcoholism [Unknown]
  - Urinary tract infection [Unknown]
  - Weight decreased [Unknown]
  - Skin odour abnormal [Unknown]
  - Pruritus [Unknown]
  - Rash [Unknown]
  - Insomnia [Unknown]
  - Renal disorder [Unknown]
  - Alcoholism [Unknown]
  - Rash [Unknown]
  - Pruritus [Unknown]
  - Angiopathy [Unknown]
  - Urinary tract infection [Unknown]
  - Alcoholism [Unknown]
